FAERS Safety Report 5842042-5 (Version None)
Quarter: 2008Q3

REPORT INFORMATION
  Report Type: 
  Country: None (occurrence: None)
  Receive Date: 20080731
  Receipt Date: 20080602
  Transmission Date: 20090109
  Serious: No
  Sender: FDA-Public Use
  Company Number: US200803003734

PATIENT
  Age: 42 Year
  Sex: Female
  Weight: 83.9 kg

DRUGS (6)
  1. BYETTA [Suspect]
     Indication: TYPE 2 DIABETES MELLITUS
     Dosage: 5 UG, 2/D, SUBCUTANEOUS, 5 UG, 2/D, SUBCUTANEOUS
     Route: 058
     Dates: start: 20071101, end: 20071201
  2. AMARYL [Concomitant]
  3. LEVOTHYROXINE SODIUM [Concomitant]
  4. ASPIRIN [Concomitant]
  5. MULTIVITAMIN [Concomitant]
  6. NOVOLOG [Concomitant]

REACTIONS (14)
  - BLOOD GLUCOSE DECREASED [None]
  - BLOOD GLUCOSE FLUCTUATION [None]
  - BLOOD PRESSURE INCREASED [None]
  - COLD SWEAT [None]
  - DIZZINESS [None]
  - HEART RATE INCREASED [None]
  - HYPERVENTILATION [None]
  - HYPOTENSION [None]
  - INJECTION SITE INFECTION [None]
  - PANIC ATTACK [None]
  - PRESYNCOPE [None]
  - TREMOR [None]
  - VISUAL IMPAIRMENT [None]
  - VOMITING [None]
